FAERS Safety Report 13291277 (Version 1)
Quarter: 2017Q1

REPORT INFORMATION
  Report Type: Spontaneous
  Country: US (occurrence: US)
  Receive Date: 20170302
  Receipt Date: 20170302
  Transmission Date: 20170428
  Serious: Yes (Life-Threatening, Hospitalization, Disabling, Other)
  Sender: FDA-Public Use
  Company Number: None

PATIENT
  Age: 36 Year
  Sex: Male
  Weight: 105.7 kg

DRUGS (1)
  1. AMLODIPINE BESYLATE. [Suspect]
     Active Substance: AMLODIPINE BESYLATE
     Indication: HYPERTENSION
     Dosage: ?          QUANTITY:30 TABLET(S);?
     Route: 048
     Dates: start: 20170202, end: 20170213

REACTIONS (14)
  - Anxiety [None]
  - Heart rate irregular [None]
  - Palpitations [None]
  - Renal pain [None]
  - Chest pain [None]
  - Tachycardia [None]
  - Heart rate increased [None]
  - Insomnia [None]
  - Chest discomfort [None]
  - Feeling abnormal [None]
  - Hypoaesthesia [None]
  - Quality of life decreased [None]
  - Blood pressure increased [None]
  - Diarrhoea [None]

NARRATIVE: CASE EVENT DATE: 20170213
